FAERS Safety Report 16936327 (Version 1)
Quarter: 2019Q4

REPORT INFORMATION
  Report Type: Report from Study
  Country: CA (occurrence: CA)
  Receive Date: 20191018
  Receipt Date: 20191018
  Transmission Date: 20200122
  Serious: Yes (Death, Hospitalization, Other)
  Sender: FDA-Public Use
  Company Number: CA-PFIZER INC-2019449278

PATIENT
  Age: 59 Year
  Sex: Male

DRUGS (6)
  1. PREDNISONE. [Concomitant]
     Active Substance: PREDNISONE
     Indication: PROPHYLAXIS
     Dosage: UNK
  2. ZENHALE [Suspect]
     Active Substance: FORMOTEROL FUMARATE\MOMETASONE FUROATE
     Dosage: 2 DF, 2X/DAY
  3. ALVESCO [Suspect]
     Active Substance: CICLESONIDE
     Dosage: 2 DF, 1X/DAY
  4. SPIRIVA [Suspect]
     Active Substance: TIOTROPIUM BROMIDE MONOHYDRATE
     Dosage: 2 DF, 2X/DAY
  5. ZITHROMAX [Suspect]
     Active Substance: AZITHROMYCIN DIHYDRATE
     Indication: PROPHYLAXIS
     Dosage: UNK
  6. SALBUTAMOL SULFATE [Suspect]
     Active Substance: ALBUTEROL SULFATE
     Dosage: 100 UG, UNK

REACTIONS (7)
  - Decreased activity [Fatal]
  - Dyspnoea [Fatal]
  - Eosinophil count abnormal [Fatal]
  - Therapeutic product effect incomplete [Fatal]
  - Asthma [Fatal]
  - Oesophageal carcinoma [Fatal]
  - Wheezing [Fatal]
